FAERS Safety Report 12328739 (Version 1)
Quarter: 2016Q2

REPORT INFORMATION
  Report Type: Spontaneous
  Country: US (occurrence: US)
  Receive Date: 20160503
  Receipt Date: 20160503
  Transmission Date: 20160815
  Serious: No
  Sender: FDA-Public Use
  Company Number: US-BEH-2015050426

PATIENT
  Sex: Male
  Weight: 127 kg

DRUGS (20)
  1. NASONEX [Concomitant]
     Active Substance: MOMETASONE FUROATE
  2. SYNTHROID [Concomitant]
     Active Substance: LEVOTHYROXINE SODIUM
  3. NORTRIPTYLINE [Concomitant]
     Active Substance: NORTRIPTYLINE
  4. AZELASTINE [Concomitant]
     Active Substance: AZELASTINE
  5. PRIMIDONE. [Concomitant]
     Active Substance: PRIMIDONE
  6. ADVAIR HFA [Concomitant]
     Active Substance: FLUTICASONE PROPIONATE\SALMETEROL XINAFOATE
  7. SUMATRIPTAN. [Concomitant]
     Active Substance: SUMATRIPTAN
  8. HIZENTRA [Suspect]
     Active Substance: HUMAN IMMUNOGLOBULIN G
     Route: 058
  9. ALBUTEROL. [Concomitant]
     Active Substance: ALBUTEROL
  10. ACIDOPHILUS [Concomitant]
     Active Substance: LACTOBACILLUS ACIDOPHILUS
  11. LEVOCETIRIZINE [Concomitant]
     Active Substance: LEVOCETIRIZINE
  12. HIZENTRA [Suspect]
     Active Substance: HUMAN IMMUNOGLOBULIN G
     Indication: IMMUNODEFICIENCY COMMON VARIABLE
     Route: 058
  13. PATANOL [Concomitant]
     Active Substance: OLOPATADINE HYDROCHLORIDE
  14. ZOFRAN [Concomitant]
     Active Substance: ONDANSETRON HYDROCHLORIDE
  15. SINGULAIR [Concomitant]
     Active Substance: MONTELUKAST SODIUM
  16. IBUPROFEN. [Concomitant]
     Active Substance: IBUPROFEN
  17. BENADRYL [Concomitant]
     Active Substance: DIPHENHYDRAMINE HYDROCHLORIDE
  18. PEPCID [Concomitant]
     Active Substance: FAMOTIDINE
  19. EPIPEN [Concomitant]
     Active Substance: EPINEPHRINE
  20. SYMBICORT [Concomitant]
     Active Substance: BUDESONIDE\FORMOTEROL FUMARATE DIHYDRATE

REACTIONS (4)
  - Unevaluable event [Unknown]
  - Injection site erythema [Unknown]
  - Injection site pain [Unknown]
  - Injection site rash [Unknown]
